FAERS Safety Report 9167948 (Version 1)
Quarter: 2013Q1

REPORT INFORMATION
  Report Type: Spontaneous
  Country: NL (occurrence: None)
  Receive Date: 20130313
  Receipt Date: 20130313
  Transmission Date: 20140127
  Serious: Yes (Death, Hospitalization)
  Sender: FDA-Public Use
  Company Number: IMP_06602_2013

PATIENT
  Age: 67 Year
  Sex: Female

DRUGS (1)
  1. METFORMIN [Suspect]
     Indication: TYPE 2 DIABETES MELLITUS

REACTIONS (5)
  - Lactic acidosis [None]
  - Shock haemorrhagic [None]
  - Hepatic failure [None]
  - Blood creatinine increased [None]
  - Haemodialysis [None]
